FAERS Safety Report 9717231 (Version 2)
Quarter: 2013Q4

REPORT INFORMATION
  Report Type: Spontaneous
  Country: US (occurrence: US)
  Receive Date: 20131127
  Receipt Date: 20131216
  Transmission Date: 20140711
  Serious: Yes (Other)
  Sender: FDA-Public Use
  Company Number: US-PFIZER INC-2013334753

PATIENT
  Age: 85 Year
  Sex: Male
  Weight: 63.49 kg

DRUGS (7)
  1. CADUET [Suspect]
     Indication: HYPERTENSION
     Dosage: [AMLODIPINE 5 MG]/[ATORVASTATIN 20 MG], ONCE A DAY
     Route: 048
  2. CADUET [Suspect]
     Indication: BLOOD CHOLESTEROL INCREASED
     Dosage: [AMLODIPINE 10 MG]/[ATORVASTATIN 10 MG], ONCE A DAY
     Route: 048
  3. CADUET [Suspect]
     Dosage: UNK, ONCE A DAY
     Route: 048
  4. LIPITOR [Concomitant]
     Indication: BLOOD CHOLESTEROL INCREASED
     Dosage: UNK
  5. ALLOPURINOL [Concomitant]
     Indication: GOUT
     Dosage: 200 MG, UNK
  6. AVODART [Concomitant]
     Dosage: 0.5 MG, UNK
  7. NORVASC [Concomitant]
     Indication: HYPERTENSION
     Dosage: UNK

REACTIONS (1)
  - Deafness [Not Recovered/Not Resolved]
